FAERS Safety Report 10143252 (Version 1)
Quarter: 2014Q2

REPORT INFORMATION
  Report Type: Spontaneous
  Country: US (occurrence: None)
  Receive Date: 20140429
  Receipt Date: 20140429
  Transmission Date: 20141212
  Serious: Yes (Disabling, Other)
  Sender: FDA-Public Use
  Company Number: None

PATIENT
  Age: 55 Year
  Sex: Female
  Weight: 70.31 kg

DRUGS (4)
  1. VICODIN ES [Suspect]
     Indication: ARTHRITIS
     Route: 048
     Dates: start: 20140314, end: 20140401
  2. VICODIN ES [Suspect]
     Indication: INTERVERTEBRAL DISC PROTRUSION
     Route: 048
     Dates: start: 20140314, end: 20140401
  3. VICODIN ES [Suspect]
     Indication: MENISCUS INJURY
     Route: 048
     Dates: start: 20140314, end: 20140401
  4. VICODIN ES [Suspect]
     Indication: NERVE INJURY
     Route: 048
     Dates: start: 20140314, end: 20140401

REACTIONS (7)
  - Drug ineffective [None]
  - Product substitution issue [None]
  - Product formulation issue [None]
  - Gait disturbance [None]
  - Malaise [None]
  - Fear [None]
  - Feeling abnormal [None]
